FAERS Safety Report 4732748-3 (Version None)
Quarter: 2005Q3

REPORT INFORMATION
  Report Type: 
  Country: None (occurrence: None)
  Receive Date: 20050803
  Receipt Date: 20050801
  Transmission Date: 20060218
  Serious: Yes (Death)
  Sender: FDA-Public Use
  Company Number: US-GLAXOSMITHKLINE-A0568350A

PATIENT
  Sex: Female

DRUGS (1)
  1. WELLBUTRIN XL [Suspect]
     Indication: DRUG USE FOR UNKNOWN INDICATION
     Dosage: 300MG SEE DOSAGE TEXT
     Route: 048

REACTIONS (4)
  - ATRIOVENTRICULAR BLOCK [None]
  - CARDIO-RESPIRATORY ARREST [None]
  - CONVULSION [None]
  - OVERDOSE [None]
